FAERS Safety Report 16106342 (Version 3)
Quarter: 2019Q4

REPORT INFORMATION
  Report Type: Spontaneous
  Country: US (occurrence: US)
  Receive Date: 20190322
  Receipt Date: 20191004
  Transmission Date: 20200122
  Serious: Yes (Other)
  Sender: FDA-Public Use
  Company Number: US-CATALYST PHARMACEUTICALS, INC-2019CAT00018

PATIENT
  Sex: Female

DRUGS (10)
  1. SIMASTATIN [Concomitant]
  2. CALCIUM [Concomitant]
     Active Substance: CALCIUM
  3. IRON [Concomitant]
     Active Substance: IRON
  4. VITAMIN D [Concomitant]
     Active Substance: VITAMIN D NOS
  5. ASPIRIN. [Concomitant]
     Active Substance: ASPIRIN
  6. ZINC. [Concomitant]
     Active Substance: ZINC
  7. FIRDAPSE [Suspect]
     Active Substance: AMIFAMPRIDINE
     Indication: MYASTHENIC SYNDROME
     Dosage: 20 MG, 4X/DAY
     Route: 048
     Dates: start: 201901, end: 2019
  8. LISINOPRIL. [Concomitant]
     Active Substance: LISINOPRIL
  9. PREVACID [Concomitant]
     Active Substance: LANSOPRAZOLE
  10. SERTRALINE [Concomitant]
     Active Substance: SERTRALINE HYDROCHLORIDE

REACTIONS (3)
  - Chest pain [Recovering/Resolving]
  - Gastrooesophageal reflux disease [Recovering/Resolving]
  - Paraesthesia oral [Not Recovered/Not Resolved]
